FAERS Safety Report 5783059-9 (Version None)
Quarter: 2008Q2

REPORT INFORMATION
  Report Type: 
  Country: None (occurrence: None)
  Receive Date: 20080619
  Receipt Date: 20080602
  Transmission Date: 20081010
  Serious: Yes (Hospitalization)
  Sender: FDA-Public Use
  Company Number: 2008S1009475

PATIENT
  Age: 15 Year
  Sex: Male

DRUGS (1)
  1. ISOTRETINOIN [Suspect]
     Indication: ACNE
     Dosage: 20 MG; DAILY; ORAL
     Route: 048

REACTIONS (4)
  - ASTHENIA [None]
  - NEPHROTIC SYNDROME [None]
  - OEDEMA [None]
  - WEIGHT INCREASED [None]
